FAERS Safety Report 23904125 (Version 2)
Quarter: 2024Q3

REPORT INFORMATION
  Report Type: Spontaneous
  Country: US (occurrence: US)
  Receive Date: 20240527
  Receipt Date: 20240704
  Transmission Date: 20241017
  Serious: Yes (Other)
  Sender: ARCUTIS
  Company Number: US-ARCUTIS BIOTHERAPEUTICS INC-2024AER000168

PATIENT

DRUGS (3)
  1. ZORYVE [Suspect]
     Active Substance: ROFLUMILAST
     Indication: Psoriasis
     Dosage: UNK
     Route: 061
  2. ZORYVE [Suspect]
     Active Substance: ROFLUMILAST
     Dosage: UNK
     Route: 061
     Dates: start: 20240404, end: 20240416
  3. ZORYVE [Suspect]
     Active Substance: ROFLUMILAST
     Dosage: UNK
     Route: 061
     Dates: start: 20240501, end: 20240506

REACTIONS (2)
  - Suicidal ideation [Unknown]
  - Pruritus [Unknown]

NARRATIVE: CASE EVENT DATE: 20240301
